FAERS Safety Report 4583844-5 (Version None)
Quarter: 2005Q1

REPORT INFORMATION
  Report Type: 
  Country: None (occurrence: None)
  Receive Date: 20050125
  Receipt Date: 20041025
  Transmission Date: 20050727
  Serious: No
  Sender: FDA-Public Use
  Company Number: USA041082034

PATIENT
  Age: 75 Year
  Sex: Female
  Weight: 26 kg

DRUGS (4)
  1. FORTEO [Suspect]
     Indication: OSTEOPOROSIS
     Dosage: 20 UG DAY
     Dates: start: 20040801
  2. CALCIUM GLUCONATE [Concomitant]
  3. PREDNISONE [Concomitant]
  4. OXYCODONE HCL [Concomitant]

REACTIONS (5)
  - CHEST WALL PAIN [None]
  - COMPRESSION FRACTURE [None]
  - DYSPNOEA [None]
  - LUNG INFECTION [None]
  - RIB FRACTURE [None]
